FAERS Safety Report 24730409 (Version 1)
Quarter: 2024Q4

REPORT INFORMATION
  Report Type: Spontaneous
  Country: US (occurrence: US)
  Receive Date: 20241213
  Receipt Date: 20241213
  Transmission Date: 20250114
  Serious: Yes (Life-Threatening, Other)
  Sender: APOTEX
  Company Number: US-APOTEX-2024AP019478

PATIENT
  Age: 15 Year
  Sex: Female

DRUGS (5)
  1. SOTALOL [Suspect]
     Active Substance: SOTALOL
     Indication: Supraventricular tachycardia
     Dosage: 120 MILLIGRAM, TID
     Route: 065
  2. SOTALOL [Suspect]
     Active Substance: SOTALOL
     Dosage: 80 MILLIGRAM, BID
     Route: 065
  3. SOTALOL [Suspect]
     Active Substance: SOTALOL
     Dosage: 120 MILLIGRAM, BID
     Route: 065
  4. DIGOXIN [Concomitant]
     Active Substance: DIGOXIN
     Indication: Supraventricular tachycardia
     Dosage: 375 MICROGRAM, BID
     Route: 065
  5. DIGOXIN [Concomitant]
     Active Substance: DIGOXIN
     Dosage: 125 MICROGRAM, QD
     Route: 065

REACTIONS (3)
  - Torsade de pointes [Recovered/Resolved]
  - Maternal exposure during pregnancy [Unknown]
  - Treatment noncompliance [Unknown]
